FAERS Safety Report 9999444 (Version 3)
Quarter: 2016Q3

REPORT INFORMATION
  Report Type: Report from Study
  Country: US (occurrence: US)
  Receive Date: 20140312
  Receipt Date: 20160908
  Transmission Date: 20161109
  Serious: Yes (Hospitalization)
  Sender: FDA-Public Use
  Company Number: US-SA-2014SA030054

PATIENT
  Age: 69 Year
  Sex: Female

DRUGS (4)
  1. FABRAZYME [Suspect]
     Active Substance: AGALSIDASE BETA
     Indication: FABRY^S DISEASE
     Dosage: 2*35 MG VIALS AND 5*5 MG VIALS
     Route: 042
     Dates: start: 20080506, end: 2014
  2. FABRAZYME [Suspect]
     Active Substance: AGALSIDASE BETA
     Indication: FABRY^S DISEASE
     Dosage: 2*35 MG VIALS AND 5*5 MG VIALS
     Route: 042
     Dates: start: 20140305, end: 20140403
  3. FABRAZYME [Suspect]
     Active Substance: AGALSIDASE BETA
     Indication: FABRY^S DISEASE
     Dosage: 2*35 MG VIALS AND 5*5 MG VIALS
     Route: 042
     Dates: start: 20080506, end: 2014
  4. FABRAZYME [Suspect]
     Active Substance: AGALSIDASE BETA
     Indication: FABRY^S DISEASE
     Dosage: 2*35 MG VIALS AND 5*5 MG VIALS
     Route: 042

REACTIONS (6)
  - Fluid overload [Unknown]
  - Ascites [Unknown]
  - Haemorrhage [Not Recovered/Not Resolved]
  - Decreased appetite [Not Recovered/Not Resolved]
  - Peripheral swelling [Not Recovered/Not Resolved]
  - Decubitus ulcer [Not Recovered/Not Resolved]

NARRATIVE: CASE EVENT DATE: 20140416
